FAERS Safety Report 5340227-8 (Version None)
Quarter: 2007Q2

REPORT INFORMATION
  Report Type: 
  Country: None (occurrence: None)
  Receive Date: 20070531
  Receipt Date: 20070523
  Transmission Date: 20071010
  Serious: Yes (Death, Other)
  Sender: FDA-Public Use
  Company Number: US-JNJFOC-20070506303

PATIENT
  Age: 47 Year
  Sex: Male

DRUGS (5)
  1. REOPRO [Suspect]
     Indication: ACUTE MYOCARDIAL INFARCTION
  2. NAPROSYN [Concomitant]
  3. ASPIRIN [Concomitant]
  4. PLAVIX [Concomitant]
  5. HEPARIN [Concomitant]

REACTIONS (6)
  - CORONARY ARTERY OCCLUSION [None]
  - DEATH [None]
  - HAEMATEMESIS [None]
  - HAEMOPTYSIS [None]
  - HYPOTENSION [None]
  - VENTRICULAR TACHYCARDIA [None]
